FAERS Safety Report 8614043-5 (Version None)
Quarter: 2012Q3

REPORT INFORMATION
  Report Type: 
  Country: None (occurrence: None)
  Receive Date: 20120823
  Receipt Date: 20120726
  Transmission Date: 20120928
  Serious: No
  Sender: FDA-Public Use
  Company Number: US-009507513-1207USA012049

PATIENT

DRUGS (2)
  1. PEG-INTRON [Suspect]
     Dosage: 150 MICROGRAM, QW
     Route: 058
  2. VICTRELIS [Suspect]
     Dosage: 800 MG, TID
     Route: 048

REACTIONS (1)
  - NEUTROPENIA [None]
